FAERS Safety Report 10397175 (Version 1)
Quarter: 2014Q3

REPORT INFORMATION
  Report Type: Spontaneous
  Country: US (occurrence: US)
  Receive Date: 20140820
  Receipt Date: 20140820
  Transmission Date: 20150326
  Serious: Yes (Hospitalization, Other)
  Sender: FDA-Public Use
  Company Number: US-ELI_LILLY_AND_COMPANY-US201408003571

PATIENT
  Sex: Female

DRUGS (5)
  1. NOVOLOG [Suspect]
     Active Substance: INSULIN ASPART
     Indication: PRODUCT USED FOR UNKNOWN INDICATION
     Route: 065
  2. LEVOTHYROXIN [Concomitant]
     Active Substance: LEVOTHYROXINE
  3. LANTUS [Concomitant]
     Active Substance: INSULIN GLARGINE
  4. HUMALOG [Suspect]
     Active Substance: INSULIN LISPRO
     Indication: PRODUCT USED FOR UNKNOWN INDICATION
     Dosage: UNK
     Route: 065
     Dates: start: 2013
  5. PLAVIX [Concomitant]
     Active Substance: CLOPIDOGREL BISULFATE
     Dosage: UNK

REACTIONS (18)
  - Hypotension [Unknown]
  - Wrong drug administered [Not Recovered/Not Resolved]
  - Drug dose omission [Recovered/Resolved]
  - Atrioventricular block [Unknown]
  - Extrasystoles [Unknown]
  - Road traffic accident [Unknown]
  - Gait disturbance [Unknown]
  - Memory impairment [Unknown]
  - Vitamin D abnormal [Unknown]
  - Intervertebral disc disorder [Unknown]
  - Chest discomfort [Unknown]
  - Underdose [Unknown]
  - Blood calcium abnormal [Unknown]
  - Fibromyalgia [Unknown]
  - Inflammation [Unknown]
  - Fatigue [Unknown]
  - Fluid retention [Unknown]
  - Blood potassium abnormal [Unknown]

NARRATIVE: CASE EVENT DATE: 2013
